FAERS Safety Report 12920802 (Version 1)
Quarter: 2016Q4

REPORT INFORMATION
  Report Type: Spontaneous
  Country: US (occurrence: US)
  Receive Date: 20161107
  Receipt Date: 20161107
  Transmission Date: 20170207
  Serious: Yes (Life-Threatening)
  Sender: FDA-Public Use
  Company Number: None

PATIENT
  Age: 77 Year
  Sex: Female
  Weight: 72 kg

DRUGS (5)
  1. ADVIL [Concomitant]
     Active Substance: IBUPROFEN
  2. FISH OIL [Concomitant]
     Active Substance: FISH OIL
  3. WELCHOL [Suspect]
     Active Substance: COLESEVELAM HYDROCHLORIDE
     Indication: BLOOD CHOLESTEROL ABNORMAL
     Dosage: ?          QUANTITY:3 TABLET(S);?
     Route: 048
     Dates: end: 20161030
  4. CALTRATE [Concomitant]
     Active Substance: CALCIUM CARBONATE
  5. TOPROL XL [Concomitant]
     Active Substance: METOPROLOL SUCCINATE

REACTIONS (7)
  - Pharyngeal oedema [None]
  - Pruritus [None]
  - Aphonia [None]
  - Swollen tongue [None]
  - Urticaria [None]
  - Swelling face [None]
  - Anaphylactic reaction [None]

NARRATIVE: CASE EVENT DATE: 20161030
